FAERS Safety Report 9074762 (Version 1)
Quarter: 2013Q1

REPORT INFORMATION
  Report Type: Spontaneous
  Country: US (occurrence: US)
  Receive Date: 20130129
  Receipt Date: 20130129
  Transmission Date: 20140127
  Serious: Yes (Other)
  Sender: FDA-Public Use
  Company Number: US-RB-049088-13

PATIENT
  Sex: Female

DRUGS (2)
  1. MUCINEX DM [Suspect]
     Indication: PRODUCT USED FOR UNKNOWN INDICATION
     Route: 048
  2. MUCINEX DM [Suspect]

REACTIONS (6)
  - Paranoia [Unknown]
  - Drug hypersensitivity [Unknown]
  - Insomnia [Unknown]
  - Exophthalmos [Unknown]
  - Palpitations [Unknown]
  - Confusional state [Unknown]
